FAERS Safety Report 4479528-4 (Version None)
Quarter: 2004Q4

REPORT INFORMATION
  Report Type: 
  Country: None (occurrence: None)
  Receive Date: 20041015
  Receipt Date: 20040928
  Transmission Date: 20050328
  Serious: Yes (Death)
  Sender: FDA-Public Use
  Company Number: 2004IC000855

PATIENT
  Age: 61 Year
  Sex: Male

DRUGS (6)
  1. FLUOROURACIL [Suspect]
     Indication: COLON CANCER
     Dosage: 900 MG; INTRAVENOUS
     Route: 042
     Dates: start: 20001017, end: 20001115
  2. CALCIUM LEVOFOLINATE (CALCIUM LEVOFOLINATE) [Suspect]
     Indication: COLON CANCER
     Dosage: 375 MG; INTRAVENOUS
     Route: 042
     Dates: start: 20001017, end: 20001115
  3. MAGNESIUM OXIDE [Concomitant]
  4. TOUGHMAC E [Concomitant]
  5. CHINESE HERBAL MEDICINE [Concomitant]
  6. FERO-GRAD [Concomitant]

REACTIONS (10)
  - COLON CANCER METASTATIC [None]
  - DEHYDRATION [None]
  - DISSEMINATED INTRAVASCULAR COAGULATION [None]
  - INTESTINAL OBSTRUCTION [None]
  - LEUKOPENIA [None]
  - MALIGNANT NEOPLASM PROGRESSION [None]
  - RENAL FAILURE ACUTE [None]
  - SEPSIS [None]
  - THERAPY NON-RESPONDER [None]
  - THROMBOCYTOPENIA [None]
